FAERS Safety Report 8241320-2 (Version None)
Quarter: 2012Q1

REPORT INFORMATION
  Report Type: 
  Country: None (occurrence: None)
  Receive Date: 20120328
  Receipt Date: 20120321
  Transmission Date: 20120608
  Serious: No
  Sender: FDA-Public Use
  Company Number: SE-PFIZER INC-2012073182

PATIENT

DRUGS (1)
  1. FOSPHENYTOIN SODIUM [Suspect]
     Dosage: 800 MG, UNK
     Dates: start: 20120321, end: 20120321

REACTIONS (2)
  - EXTRAVASATION [None]
  - OEDEMA PERIPHERAL [None]
